FAERS Safety Report 4966053-7 (Version None)
Quarter: 2006Q2

REPORT INFORMATION
  Report Type: 
  Country: None (occurrence: None)
  Receive Date: 20060403
  Receipt Date: 20060318
  Transmission Date: 20061013
  Serious: Yes (Hospitalization, Other)
  Sender: FDA-Public Use
  Company Number: 2005US001744

PATIENT
  Age: 3 Year
  Sex: Female

DRUGS (3)
  1. PROTOPIC [Suspect]
     Indication: ECZEMA
     Dosage: UID/QD, TOPICAL
     Route: 061
     Dates: start: 20021018
  2. ELIDEL [Suspect]
     Dosage: TOPICAL
     Route: 061
  3. ELOCON [Concomitant]

REACTIONS (12)
  - ABDOMINAL MASS [None]
  - ANOREXIA [None]
  - CONSTIPATION [None]
  - DIFFUSE LARGE B-CELL LYMPHOMA [None]
  - GASTROINTESTINAL NEOPLASM [None]
  - HEPATIC CYST [None]
  - HEPATIC LESION [None]
  - HEPATIC NEOPLASM [None]
  - INTUSSUSCEPTION [None]
  - RENAL NEOPLASM [None]
  - SMALL INTESTINAL RESECTION [None]
  - SMALL INTESTINE CARCINOMA [None]
